FAERS Safety Report 5654204-0 (Version None)
Quarter: 2008Q1

REPORT INFORMATION
  Report Type: 
  Country: None (occurrence: None)
  Receive Date: 20080306
  Receipt Date: 20080304
  Transmission Date: 20080703
  Serious: Yes (Other)
  Sender: FDA-Public Use
  Company Number: BW-BOEHRINGER INGELHEIM GMBH, GERMANY-2007-BP-05161BP

PATIENT
  Age: 30 Year
  Sex: Female

DRUGS (6)
  1. VIRAMUNE [Suspect]
     Indication: HIV INFECTION
     Route: 048
     Dates: start: 20040827, end: 20040913
  2. VIRAMUNE [Suspect]
     Route: 048
     Dates: start: 20040913, end: 20041118
  3. SUSTIVA [Suspect]
     Indication: HIV INFECTION
     Route: 048
     Dates: start: 20031015, end: 20040827
  4. SUSTIVA [Suspect]
     Route: 048
     Dates: start: 20041118
  5. RETROVIR [Suspect]
     Indication: HIV INFECTION
     Route: 048
     Dates: start: 20031015
  6. VIDEX [Suspect]
     Indication: HIV INFECTION
     Route: 048
     Dates: start: 20031015

REACTIONS (2)
  - IMMINENT ABORTION [None]
  - VAGINAL HAEMORRHAGE [None]
